FAERS Safety Report 5367841-8 (Version None)
Quarter: 2007Q2

REPORT INFORMATION
  Report Type: 
  Country: None (occurrence: None)
  Receive Date: 20070622
  Receipt Date: 20070612
  Transmission Date: 20071010
  Serious: Yes (Other)
  Sender: FDA-Public Use
  Company Number: US-PFIZER INC-2007047296

PATIENT
  Age: 80 Year
  Sex: Female
  Weight: 47.6 kg

DRUGS (6)
  1. CHANTIX [Suspect]
     Indication: SMOKING CESSATION THERAPY
  2. TOPROL-XL [Concomitant]
  3. CALCIUM CHLORIDE [Concomitant]
  4. FOSAMAX [Concomitant]
  5. PRILOSEC [Concomitant]
  6. VITAMIN CAP [Concomitant]

REACTIONS (5)
  - CONSTIPATION [None]
  - DRUG DISPENSING ERROR [None]
  - METASTASIS [None]
  - NAUSEA [None]
  - VOMITING [None]
